FAERS Safety Report 5366168-8 (Version None)
Quarter: 2007Q2

REPORT INFORMATION
  Report Type: 
  Country: None (occurrence: None)
  Receive Date: 20070611
  Receipt Date: 20070103
  Transmission Date: 20071010
  Serious: Yes (Hospitalization, Other)
  Sender: FDA-Public Use
  Company Number: USA-2007-0026079

PATIENT
  Age: 35 Year
  Sex: Female

DRUGS (2)
  1. OXYCONTIN [Suspect]
     Indication: BACK PAIN
     Dosage: 60 MG, BID
     Dates: start: 20010101, end: 20060101
  2. XANAX [Suspect]
     Indication: DRUG ABUSER

REACTIONS (1)
  - SUBSTANCE ABUSE [None]
